FAERS Safety Report 16455691 (Version 1)
Quarter: 2019Q2

REPORT INFORMATION
  Report Type: Spontaneous
  Country: DK (occurrence: DK)
  Receive Date: 20190619
  Receipt Date: 20190619
  Transmission Date: 20190711
  Serious: Yes (Hospitalization)
  Sender: FDA-Public Use
  Company Number: PHHY2019DK138240

PATIENT
  Age: 65 Year
  Sex: Female

DRUGS (1)
  1. PARACETAMOL [Suspect]
     Active Substance: ACETAMINOPHEN
     Indication: KNEE OPERATION
     Dosage: 8 G, UNK
     Route: 065

REACTIONS (2)
  - Product prescribing error [Unknown]
  - Overdose [Unknown]
